FAERS Safety Report 9720658 (Version 2)
Quarter: 2013Q4

REPORT INFORMATION
  Report Type: Spontaneous
  Country: JP (occurrence: JP)
  Receive Date: 20131129
  Receipt Date: 20131210
  Transmission Date: 20140711
  Serious: Yes (Death, Other)
  Sender: FDA-Public Use
  Company Number: PHHY2013JP138112

PATIENT
  Sex: 0

DRUGS (3)
  1. ZOLEDRONIC ACID [Suspect]
     Indication: METASTASES TO BONE
  2. ZOLEDRONIC ACID [Suspect]
     Indication: METASTASES TO CENTRAL NERVOUS SYSTEM
  3. ZOLEDRONIC ACID [Suspect]
     Indication: METASTASES TO LIVER

REACTIONS (2)
  - Breast cancer metastatic [Fatal]
  - Osteonecrosis of jaw [Unknown]
